FAERS Safety Report 21012571 (Version 1)
Quarter: 2022Q2

REPORT INFORMATION
  Report Type: Spontaneous
  Country: NO (occurrence: NO)
  Receive Date: 20220627
  Receipt Date: 20220627
  Transmission Date: 20220721
  Serious: Yes (Hospitalization, Disabling)
  Sender: FDA-Public Use
  Company Number: NO-LUNDBECK-DKLU3049314

PATIENT
  Sex: Female
  Weight: 65 kg

DRUGS (2)
  1. ESCITALOPRAM OXALATE [Suspect]
     Active Substance: ESCITALOPRAM OXALATE
     Indication: Depression
     Dosage: 20 MG, QD
     Route: 048
     Dates: start: 202108, end: 20220516
  2. DESOGESTREL [Concomitant]
     Active Substance: DESOGESTREL
     Dosage: 1 DF
     Route: 048
     Dates: start: 2007

REACTIONS (1)
  - Lower limb fracture [Unknown]
